FAERS Safety Report 14720319 (Version 1)
Quarter: 2018Q2

REPORT INFORMATION
  Report Type: Spontaneous
  Country: LT (occurrence: LT)
  Receive Date: 20180405
  Receipt Date: 20180405
  Transmission Date: 20180711
  Serious: Yes (Other)
  Sender: FDA-Public Use
  Company Number: LT-BAYER-2018-058769

PATIENT
  Age: 30 Year
  Sex: Female

DRUGS (1)
  1. AVELOX [Suspect]
     Active Substance: MOXIFLOXACIN HYDROCHLORIDE
     Indication: PELVIC INFLAMMATORY DISEASE
     Dosage: 400 MG, QD
     Route: 048
     Dates: start: 20180325

REACTIONS (4)
  - Asthenia [None]
  - Paraesthesia [None]
  - Bradycardia [None]
  - Electrocardiogram QT prolonged [None]

NARRATIVE: CASE EVENT DATE: 20180325
